FAERS Safety Report 24187957 (Version 1)
Quarter: 2024Q3

REPORT INFORMATION
  Report Type: Spontaneous
  Country: US (occurrence: US)
  Receive Date: 20240808
  Receipt Date: 20240808
  Transmission Date: 20241016
  Serious: No
  Sender: AUROBINDO
  Company Number: US-AUROBINDO-AUR-APL-2023-062647

PATIENT
  Age: 56 Year
  Sex: Female
  Weight: 50 kg

DRUGS (3)
  1. LEVOFLOXACIN [Suspect]
     Active Substance: LEVOFLOXACIN
     Indication: Skin infection
     Dosage: ONCE A DAY FOR 05 DAYS
     Route: 065
     Dates: start: 20231003
  2. LEVOFLOXACIN [Suspect]
     Active Substance: LEVOFLOXACIN
     Indication: Wound infection
  3. LEVOFLOXACIN [Suspect]
     Active Substance: LEVOFLOXACIN
     Indication: Bloodborne infection

REACTIONS (3)
  - Dizziness [Unknown]
  - Product use complaint [Unknown]
  - Product size issue [Unknown]
